FAERS Safety Report 17035477 (Version 1)
Quarter: 2019Q4

REPORT INFORMATION
  Report Type: Report from Study
  Country: SK (occurrence: SK)
  Receive Date: 20191115
  Receipt Date: 20191115
  Transmission Date: 20200122
  Serious: Yes (Other)
  Sender: FDA-Public Use
  Company Number: PHHY2014SK070934

PATIENT
  Age: 26 Year
  Sex: Female

DRUGS (1)
  1. GILENYA [Suspect]
     Active Substance: FINGOLIMOD HYDROCHLORIDE
     Indication: MULTIPLE SCLEROSIS
     Dosage: UNK, QD
     Route: 048
     Dates: start: 20130605

REACTIONS (12)
  - Lymphopenia [Recovered/Resolved]
  - Liver disorder [Recovered/Resolved]
  - Upper respiratory tract infection [Unknown]
  - Lymphopenia [Recovered/Resolved]
  - Alanine aminotransferase increased [Recovered/Resolved]
  - Vertigo [Unknown]
  - Aspartate aminotransferase increased [Recovered/Resolved]
  - Leukopenia [Recovered/Resolved]
  - Leukopenia [Recovered/Resolved]
  - Leukopenia [Recovered/Resolved]
  - Gamma-glutamyltransferase increased [Unknown]
  - Migraine [Unknown]

NARRATIVE: CASE EVENT DATE: 20131115
